FAERS Safety Report 25644296 (Version 1)
Quarter: 2025Q3

REPORT INFORMATION
  Report Type: Spontaneous
  Country: US (occurrence: US)
  Receive Date: 20250805
  Receipt Date: 20250805
  Transmission Date: 20251021
  Serious: Yes (Death, Life-Threatening, Other)
  Sender: RANBAXY
  Company Number: US-SUN PHARMACEUTICAL INDUSTRIES LTD-2025R1-520807

PATIENT
  Age: 72 Year
  Sex: Female

DRUGS (3)
  1. PREDNISONE [Suspect]
     Active Substance: PREDNISONE
     Indication: Pulmonary alveolar haemorrhage
     Route: 065
  2. CEFEPIME [Suspect]
     Active Substance: CEFEPIME HYDROCHLORIDE
     Indication: Lung consolidation
     Route: 065
  3. VANCOMYCIN [Suspect]
     Active Substance: VANCOMYCIN
     Indication: Lung consolidation
     Route: 065

REACTIONS (11)
  - Mucormycosis [Fatal]
  - Pneumonia fungal [Fatal]
  - Aspergillus infection [Fatal]
  - Candida infection [Fatal]
  - Respiratory failure [Unknown]
  - Acute kidney injury [Unknown]
  - Encephalopathy [Unknown]
  - Lymphadenopathy [Unknown]
  - Renal failure [Unknown]
  - Lactic acidosis [Unknown]
  - Circulatory collapse [Unknown]
